APPROVED DRUG PRODUCT: SUGAMMADEX SODIUM
Active Ingredient: SUGAMMADEX SODIUM
Strength: EQ 200MG BASE/2ML (EQ 100MG BASE/ML)
Dosage Form/Route: SOLUTION;INTRAVENOUS
Application: A214279 | Product #001 | TE Code: AP
Applicant: B BRAUN MEDICAL INC
Approved: Aug 5, 2025 | RLD: No | RS: No | Type: RX